FAERS Safety Report 16470621 (Version 1)
Quarter: 2019Q2

REPORT INFORMATION
  Report Type: Report from Study
  Country: US (occurrence: US)
  Receive Date: 20190624
  Receipt Date: 20190624
  Transmission Date: 20190711
  Serious: Yes (Death, Hospitalization)
  Sender: FDA-Public Use
  Company Number: US-ACTELION-A-US2016-138594

PATIENT
  Age: 74 Year
  Sex: Male

DRUGS (23)
  1. CARDURA [Concomitant]
     Active Substance: DOXAZOSIN MESYLATE
  2. SINGULAIR [Concomitant]
     Active Substance: MONTELUKAST SODIUM
  3. DALIRESP [Concomitant]
     Active Substance: ROFLUMILAST
  4. SYMBICORT [Concomitant]
     Active Substance: BUDESONIDE\FORMOTEROL FUMARATE DIHYDRATE
  5. CLARITIN [Concomitant]
     Active Substance: LORATADINE
  6. TRACLEER [Suspect]
     Active Substance: BOSENTAN
     Indication: PULMONARY ARTERIAL HYPERTENSION
     Dosage: 125 MG, BID
     Route: 048
     Dates: start: 20120927
  7. REQUIP [Concomitant]
     Active Substance: ROPINIROLE HYDROCHLORIDE
  8. PRILOSEC [Concomitant]
     Active Substance: OMEPRAZOLE MAGNESIUM
  9. PAXIL [Concomitant]
     Active Substance: PAROXETINE HYDROCHLORIDE
  10. NEURONTIN [Concomitant]
     Active Substance: GABAPENTIN
  11. DOXYCYCLINE. [Concomitant]
     Active Substance: DOXYCYCLINE
     Dosage: 100 MG, BID
  12. DOXEPIN [Concomitant]
     Active Substance: DOXEPIN
  13. FLONASE [Concomitant]
     Active Substance: FLUTICASONE PROPIONATE
  14. OMEPRAZOLE. [Concomitant]
     Active Substance: OMEPRAZOLE
  15. SPIRIVA [Concomitant]
     Active Substance: TIOTROPIUM BROMIDE MONOHYDRATE
  16. TUSSIN [Concomitant]
     Active Substance: GUAIFENESIN
  17. MUCINEX [Concomitant]
     Active Substance: GUAIFENESIN
  18. VITAMIN D [Concomitant]
     Active Substance: VITAMIN D NOS
  19. LASIX [Concomitant]
     Active Substance: FUROSEMIDE
     Dosage: UNK
  20. ALBUTEROL SULFATE. [Concomitant]
     Active Substance: ALBUTEROL SULFATE
  21. ZYRTEC [Concomitant]
     Active Substance: CETIRIZINE HYDROCHLORIDE
  22. TRACLEER [Suspect]
     Active Substance: BOSENTAN
     Dosage: 125 MG, BID
     Route: 048
     Dates: start: 20120927
  23. IPRATROPIUM [Concomitant]
     Active Substance: IPRATROPIUM

REACTIONS (10)
  - Fatigue [Not Recovered/Not Resolved]
  - Urinary tract infection [Not Recovered/Not Resolved]
  - Bronchitis [Recovering/Resolving]
  - Haemoglobin decreased [Unknown]
  - Pulmonary congestion [Recovering/Resolving]
  - Pruritus generalised [Not Recovered/Not Resolved]
  - Death [Fatal]
  - Pneumonia [Recovered/Resolved]
  - Productive cough [Recovering/Resolving]
  - Pyrexia [Recovering/Resolving]

NARRATIVE: CASE EVENT DATE: 20160616
